FAERS Safety Report 8779860 (Version 2)
Quarter: 2012Q4

REPORT INFORMATION
  Report Type: 
  Country: IR (occurrence: IR)
  Receive Date: 20120912
  Receipt Date: 20121005
  Transmission Date: 20130627
  Serious: Yes (Other)
  Sender: FDA-Public Use
  Company Number: IR-ACTELION-A-CH2012-66368

PATIENT
  Age: 48 Year
  Sex: Female

DRUGS (5)
  1. TRACLEER [Suspect]
     Indication: PULMONARY ARTERIAL HYPERTENSION
     Dosage: 125 mg, bid
     Route: 048
     Dates: start: 20111123
  2. TRACLEER [Suspect]
     Dosage: 62.5 mg, bid
     Route: 048
     Dates: start: 20111023, end: 20111122
  3. SPIRONOLACTONE [Suspect]
  4. SILDENAFIL [Concomitant]
  5. WARFARIN [Concomitant]

REACTIONS (3)
  - Thrombocytopenic purpura [Not Recovered/Not Resolved]
  - Thrombocytopenia [Not Recovered/Not Resolved]
  - Aspiration bone marrow [Not Recovered/Not Resolved]
